FAERS Safety Report 19971577 (Version 1)
Quarter: 2021Q4

REPORT INFORMATION
  Report Type: Spontaneous
  Country: CN (occurrence: CN)
  Receive Date: 20211020
  Receipt Date: 20211020
  Transmission Date: 20220303
  Serious: Yes (Other)
  Sender: FDA-Public Use
  Company Number: CN-BLUEPRINT MEDICINES CORPORATION-SO-CN-2021-001889

PATIENT

DRUGS (1)
  1. GAVRETO [Suspect]
     Active Substance: PRALSETINIB
     Indication: Product used for unknown indication
     Route: 048
     Dates: start: 2021

REACTIONS (6)
  - Hydrothorax [Unknown]
  - Condition aggravated [Unknown]
  - Pleural thickening [Unknown]
  - Aptyalism [Unknown]
  - Dizziness [Unknown]
  - Asthenia [Unknown]
